FAERS Safety Report 7808600-3 (Version None)
Quarter: 2011Q4

REPORT INFORMATION
  Report Type: 
  Country: None (occurrence: None)
  Receive Date: 20111012
  Receipt Date: 20111006
  Transmission Date: 20120403
  Serious: No
  Sender: FDA-Public Use
  Company Number: US-PFIZER INC-2011239385

PATIENT
  Sex: Female
  Weight: 72.6 kg

DRUGS (1)
  1. ESTRING [Suspect]
     Indication: VULVOVAGINAL DRYNESS
     Dosage: 2 MG, UNK
     Route: 067
     Dates: start: 20111004, end: 20111006

REACTIONS (2)
  - VULVOVAGINAL DISCOMFORT [None]
  - FEELING ABNORMAL [None]
